FAERS Safety Report 6470351-8 (Version None)
Quarter: 2009Q4

REPORT INFORMATION
  Report Type: 
  Country: None (occurrence: None)
  Receive Date: 20091203
  Receipt Date: 20091125
  Transmission Date: 20100525
  Serious: Yes (Hospitalization)
  Sender: FDA-Public Use
  Company Number: GXKR2009TR12815

PATIENT
  Age: 16 Year
  Sex: Male

DRUGS (4)
  1. WARFARIN (NGX) [Suspect]
     Indication: INTERNATIONAL NORMALISED RATIO
     Dosage: 10 MG
     Route: 065
  2. WARFARIN (NGX) [Interacting]
     Dosage: 15 MG/DAY
     Route: 065
  3. WARFARIN (NGX) [Interacting]
     Dosage: 20 MG/DAY
     Route: 065
  4. OXCARBAZEPINE [Interacting]
     Indication: EPILEPSY
     Route: 065

REACTIONS (3)
  - DRUG INTERACTION [None]
  - DRUG RESISTANCE [None]
  - INTERNATIONAL NORMALISED RATIO DECREASED [None]
